FAERS Safety Report 7659296-5 (Version None)
Quarter: 2011Q3

REPORT INFORMATION
  Report Type: 
  Country: None (occurrence: None)
  Receive Date: 20110804
  Receipt Date: 20110804
  Transmission Date: 20111222
  Serious: Yes (Disabling)
  Sender: FDA-Public Use
  Company Number: None

PATIENT
  Age: 49 Year
  Sex: Female
  Weight: 97.977 kg

DRUGS (1)
  1. NICOTINE [Suspect]
     Indication: SMOKING CESSATION THERAPY
     Dosage: 1 EVERY 3 HR
     Dates: start: 20110604

REACTIONS (7)
  - SKIN DISCOLOURATION [None]
  - BURNING SENSATION [None]
  - HYPERHIDROSIS [None]
  - EYE SWELLING [None]
  - VISUAL ACUITY REDUCED [None]
  - ORAL MUCOSAL EXFOLIATION [None]
  - SKIN DISORDER [None]
